FAERS Safety Report 5492900-9 (Version None)
Quarter: 2007Q4

REPORT INFORMATION
  Report Type: 
  Country: None (occurrence: None)
  Receive Date: 20071023
  Receipt Date: 20071016
  Transmission Date: 20080405
  Serious: Yes (Other)
  Sender: FDA-Public Use
  Company Number: US-AVENTIS-200717320US

PATIENT
  Sex: Male
  Weight: 129.54 kg

DRUGS (5)
  1. LANTUS [Suspect]
     Dosage: DOSE: 10 UNITS GRADUALLY INCREASED TO 75 UNITS AT NIGHT AND 20 UNIT IN THE MORNING
     Route: 051
     Dates: start: 20070701, end: 20071010
  2. LANTUS [Suspect]
     Route: 051
     Dates: start: 20071016
  3. LANTUS [Suspect]
     Route: 051
     Dates: start: 20071001
  4. GLUCOPHAGE [Concomitant]
     Dosage: DOSE: UNK
     Dates: end: 20070101
  5. GLUCOPHAGE [Concomitant]
     Dosage: DOSE: 500 (1-2) AC
     Dates: start: 20070101

REACTIONS (4)
  - BLOOD PRESSURE INCREASED [None]
  - MUSCULAR WEAKNESS [None]
  - MYALGIA [None]
  - WEIGHT INCREASED [None]
